FAERS Safety Report 6782650-0 (Version None)
Quarter: 2010Q2

REPORT INFORMATION
  Report Type: 
  Country: None (occurrence: None)
  Receive Date: 20100621
  Receipt Date: 20100616
  Transmission Date: 20101027
  Serious: Yes (Death, Other)
  Sender: FDA-Public Use
  Company Number: PHHY2010MT39198

PATIENT
  Age: 70 Year
  Sex: Female

DRUGS (1)
  1. ZOMETA [Suspect]
     Indication: METASTASES TO BONE
     Dosage: 4 MG EVERY 4 WEEKS
     Dates: start: 20100201

REACTIONS (4)
  - CONVULSION [None]
  - DEATH [None]
  - HYPOCALCAEMIA [None]
  - METASTASES TO CENTRAL NERVOUS SYSTEM [None]
